FAERS Safety Report 17224188 (Version 2)
Quarter: 2020Q2

REPORT INFORMATION
  Report Type: Spontaneous
  Country: US (occurrence: US)
  Receive Date: 20200102
  Receipt Date: 20200520
  Transmission Date: 20200713
  Serious: No
  Sender: FDA-Public Use
  Company Number: US-JNJFOC-20191238429

PATIENT
  Sex: Male
  Weight: 74.91 kg

DRUGS (2)
  1. ULTRAM [Suspect]
     Active Substance: TRAMADOL HYDROCHLORIDE
     Indication: PAIN
     Route: 048
     Dates: start: 2003
  2. ULTRAM [Suspect]
     Active Substance: TRAMADOL HYDROCHLORIDE
     Indication: MUSCULOSKELETAL STIFFNESS

REACTIONS (5)
  - Intentional product misuse [Unknown]
  - Paraesthesia [Unknown]
  - Nervous system disorder [Unknown]
  - Restless legs syndrome [Unknown]
  - Insomnia [Unknown]

NARRATIVE: CASE EVENT DATE: 2007
